FAERS Safety Report 9970098 (Version 1)
Quarter: 2014Q1

REPORT INFORMATION
  Report Type: Spontaneous
  Country: US (occurrence: None)
  Receive Date: 20140131
  Receipt Date: 20140131
  Transmission Date: 20141002
  Serious: Yes (Hospitalization, Other)
  Sender: FDA-Public Use
  Company Number: 074430

PATIENT
  Sex: Male
  Weight: 65.7 kg

DRUGS (3)
  1. KEPPRA [Suspect]
     Indication: CONVULSION
  2. TYLENOL /00020001/ [Concomitant]
  3. IBUPROFEN [Concomitant]

REACTIONS (4)
  - Convulsion [None]
  - Tooth infection [None]
  - Treatment noncompliance [None]
  - Inappropriate schedule of drug administration [None]
